FAERS Safety Report 7471535-2 (Version None)
Quarter: 2011Q2

REPORT INFORMATION
  Report Type: 
  Country: None (occurrence: None)
  Receive Date: 20110502
  Receipt Date: 20110419
  Transmission Date: 20111010
  Serious: Yes (Other)
  Sender: FDA-Public Use
  Company Number: ALA_01865_2011

PATIENT
  Sex: Female

DRUGS (1)
  1. METOCLOPRAMIDE [Suspect]
     Indication: PRODUCT USED FOR UNKNOWN INDICATION
     Dosage: DF ORAL
     Route: 048
     Dates: start: 20000701, end: 20090201

REACTIONS (11)
  - CHOREA [None]
  - INJURY [None]
  - DYSKINESIA [None]
  - RESTLESS LEGS SYNDROME [None]
  - TREMOR [None]
  - ECONOMIC PROBLEM [None]
  - TARDIVE DYSKINESIA [None]
  - EMOTIONAL DISORDER [None]
  - GAIT DISTURBANCE [None]
  - DYSPHAGIA [None]
  - POLYNEUROPATHY [None]
